FAERS Safety Report 6617752-2 (Version None)
Quarter: 2010Q1

REPORT INFORMATION
  Report Type: 
  Country: None (occurrence: None)
  Receive Date: 20100308
  Receipt Date: 20100225
  Transmission Date: 20100710
  Serious: Yes (Other)
  Sender: FDA-Public Use
  Company Number: US-BAYER-201015110NA

PATIENT
  Age: 27 Year
  Sex: Female

DRUGS (1)
  1. MIRENA [Suspect]
     Indication: CONTRACEPTION
     Dosage: FREQUENCY: CONTINUOUS
     Route: 015
     Dates: start: 20081201

REACTIONS (6)
  - BREAST ENLARGEMENT [None]
  - DIZZINESS [None]
  - LOSS OF LIBIDO [None]
  - NO THERAPEUTIC RESPONSE [None]
  - SYNCOPE [None]
  - WEIGHT INCREASED [None]
